FAERS Safety Report 7001000-8 (Version None)
Quarter: 2010Q3

REPORT INFORMATION
  Report Type: 
  Country: None (occurrence: None)
  Receive Date: 20100920
  Receipt Date: 20071008
  Transmission Date: 20110219
  Serious: Yes (Hospitalization, Other)
  Sender: FDA-Public Use
  Company Number: US-ASTRAZENECA-2006UW23300

PATIENT
  Age: 18100 Day
  Sex: Male
  Weight: 98.4 kg

DRUGS (28)
  1. SEROQUEL [Suspect]
     Indication: POST-TRAUMATIC STRESS DISORDER
     Route: 048
     Dates: start: 19990101, end: 20050101
  2. SEROQUEL [Suspect]
     Indication: INSOMNIA
     Route: 048
     Dates: start: 19990101, end: 20050101
  3. SEROQUEL [Suspect]
     Indication: ANXIETY
     Route: 048
     Dates: start: 19990101, end: 20050101
  4. SEROQUEL [Suspect]
     Indication: BIPOLAR DISORDER
     Route: 048
     Dates: start: 19990101, end: 20050101
  5. SEROQUEL [Suspect]
     Indication: AGITATION
     Route: 048
     Dates: start: 19990101, end: 20050101
  6. SEROQUEL [Suspect]
     Indication: DEPRESSED LEVEL OF CONSCIOUSNESS
     Route: 048
     Dates: start: 19990101, end: 20050101
  7. SEROQUEL [Suspect]
     Indication: IMPULSIVE BEHAVIOUR
     Route: 048
     Dates: start: 19990101, end: 20050101
  8. SEROQUEL [Suspect]
     Dosage: 25-1600 MG
     Route: 048
     Dates: start: 20000501, end: 20050101
  9. SEROQUEL [Suspect]
     Dosage: 25-1600 MG
     Route: 048
     Dates: start: 20000501, end: 20050101
  10. SEROQUEL [Suspect]
     Dosage: 25-1600 MG
     Route: 048
     Dates: start: 20000501, end: 20050101
  11. SEROQUEL [Suspect]
     Dosage: 25-1600 MG
     Route: 048
     Dates: start: 20000501, end: 20050101
  12. SEROQUEL [Suspect]
     Dosage: 25-1600 MG
     Route: 048
     Dates: start: 20000501, end: 20050101
  13. SEROQUEL [Suspect]
     Dosage: 25-1600 MG
     Route: 048
     Dates: start: 20000501, end: 20050101
  14. SEROQUEL [Suspect]
     Dosage: 25-1600 MG
     Route: 048
     Dates: start: 20000501, end: 20050101
  15. ABILIFY [Concomitant]
  16. CLOZARIL [Concomitant]
  17. TRILAFON [Concomitant]
  18. GEODON [Concomitant]
  19. WELLBUTRIN [Concomitant]
     Dosage: 150-300 MG
     Route: 048
     Dates: start: 19990131, end: 20041129
  20. CELEXA [Concomitant]
     Indication: DEPRESSION
     Dosage: 20-60 MG
     Route: 048
     Dates: start: 19991113
  21. CELEXA [Concomitant]
     Indication: ANXIETY
     Dosage: 20-60 MG
     Route: 048
     Dates: start: 19991113
  22. DEPAKOTE [Concomitant]
     Indication: DEPRESSION
     Dosage: 500-2500 MG
     Route: 048
     Dates: start: 19970822
  23. TRAZODONE HCL [Concomitant]
     Indication: DEPRESSION
     Dosage: 50-100 MG
     Route: 048
     Dates: start: 19971104
  24. TRAZODONE HCL [Concomitant]
     Indication: POST-TRAUMATIC STRESS DISORDER
     Dosage: 50-100 MG
     Route: 048
     Dates: start: 19971104
  25. TRAZODONE HCL [Concomitant]
     Indication: SLEEP DISORDER
     Dosage: 50-100 MG
     Route: 048
     Dates: start: 19971104
  26. IMIPRAMINE [Concomitant]
     Indication: DEPRESSION
     Dosage: 50-300 MG
     Route: 048
     Dates: start: 19950503
  27. IMIPRAMINE [Concomitant]
     Indication: POST-TRAUMATIC STRESS DISORDER
     Dosage: 50-300 MG
     Route: 048
     Dates: start: 19950503
  28. MONOPRIL [Concomitant]
     Indication: HYPERTENSION
     Route: 048
     Dates: start: 19950207

REACTIONS (4)
  - DIABETES MELLITUS [None]
  - PANCREATITIS [None]
  - PANCREATITIS ACUTE [None]
  - TYPE 2 DIABETES MELLITUS [None]
